FAERS Safety Report 4784782-5 (Version None)
Quarter: 2005Q3

REPORT INFORMATION
  Report Type: 
  Country: None (occurrence: None)
  Receive Date: 20050930
  Receipt Date: 20050923
  Transmission Date: 20060218
  Serious: Yes (Other)
  Sender: FDA-Public Use
  Company Number: PHBS2005PT14160

PATIENT
  Age: 47 Year
  Sex: Female

DRUGS (3)
  1. ZOMETA [Suspect]
     Indication: MULTIPLE MYELOMA
     Route: 042
     Dates: start: 20030101, end: 20050701
  2. CHEMOTHERAPEUTICS,OTHER [Concomitant]
     Indication: MULTIPLE MYELOMA
  3. ALLOGENIC TRANSPLANTATION [Concomitant]

REACTIONS (2)
  - OSTEOMYELITIS [None]
  - SURGERY [None]
